FAERS Safety Report 15403132 (Version 1)
Quarter: 2018Q3

REPORT INFORMATION
  Report Type: Spontaneous
  Country: US (occurrence: US)
  Receive Date: 20180918
  Receipt Date: 20180918
  Transmission Date: 20181010
  Serious: No
  Sender: FDA-Public Use
  Company Number: None

PATIENT
  Age: 60 Year
  Sex: Female
  Weight: 67.5 kg

DRUGS (1)
  1. SENSODYNE REPAIR AND PROTECT WHITENING [Suspect]
     Active Substance: STANNOUS FLUORIDE
     Indication: DENTAL CARE
     Dosage: ?          QUANTITY:1 TUBE;OTHER ROUTE:BRUSHING TEETH?
     Dates: start: 20180903, end: 20180911

REACTIONS (9)
  - Gingival pain [None]
  - Lip pain [None]
  - Gingival bleeding [None]
  - Paraesthesia oral [None]
  - Noninfective gingivitis [None]
  - Lip swelling [None]
  - Condition aggravated [None]
  - Lip erythema [None]
  - Product substitution issue [None]

NARRATIVE: CASE EVENT DATE: 20180903
